FAERS Safety Report 21408736 (Version 1)
Quarter: 2022Q4

REPORT INFORMATION
  Report Type: Spontaneous
  Country: DE (occurrence: DE)
  Receive Date: 20221004
  Receipt Date: 20221004
  Transmission Date: 20230113
  Serious: Yes (Other)
  Sender: FDA-Public Use
  Company Number: DE-BRISTOL-MYERS SQUIBB COMPANY-2022-112784

PATIENT
  Age: 56 Year

DRUGS (4)
  1. DEXAMETHASONE [Suspect]
     Active Substance: DEXAMETHASONE
     Indication: Plasma cell myeloma
     Route: 065
     Dates: start: 201905, end: 202110
  2. POMALIDOMIDE [Suspect]
     Active Substance: POMALIDOMIDE
     Indication: Plasma cell myeloma
     Dosage: POMALIDOMIDE DOSE REDUCED DURING COURSE TO 3MG, LAST 2MG
     Route: 065
     Dates: start: 201905, end: 202110
  3. POMALIDOMIDE [Suspect]
     Active Substance: POMALIDOMIDE
     Dates: start: 201905, end: 202110
  4. DARATUMUMAB [Suspect]
     Active Substance: DARATUMUMAB
     Indication: Plasma cell myeloma
     Route: 065
     Dates: start: 201905, end: 202110

REACTIONS (4)
  - Pneumonia [Unknown]
  - Acute kidney injury [Unknown]
  - Renal failure [Unknown]
  - Otitis media [Unknown]
